FAERS Safety Report 8880113 (Version 3)
Quarter: 2012Q4

REPORT INFORMATION
  Report Type: Report from Study
  Country: BR (occurrence: BR)
  Receive Date: 20121031
  Receipt Date: 20121128
  Transmission Date: 20130627
  Serious: Yes (Hospitalization, Other)
  Sender: FDA-Public Use
  Company Number: BR-ABBOTT-12P-020-1000052-00

PATIENT
  Sex: Male
  Weight: 86 kg

DRUGS (4)
  1. HUMIRA [Suspect]
     Indication: RHEUMATOID ARTHRITIS
     Dates: start: 20070101
  2. METHOTREXATE [Concomitant]
     Indication: RHEUMATOID ARTHRITIS
     Route: 048
     Dates: start: 2007
  3. ENDOFOLIN [Concomitant]
     Indication: RHEUMATIC DISORDER
     Route: 048
     Dates: start: 2007
  4. FOLIC ACID [Concomitant]
     Indication: RHEUMATOID ARTHRITIS

REACTIONS (2)
  - Deep vein thrombosis [Recovered/Resolved]
  - Fall [Unknown]
